FAERS Safety Report 7925014-6 (Version None)
Quarter: 2011Q4

REPORT INFORMATION
  Report Type: 
  Country: None (occurrence: None)
  Receive Date: 20111118
  Receipt Date: 20110331
  Transmission Date: 20120403
  Serious: No
  Sender: FDA-Public Use
  Company Number: US-AMGEN-USASP2011017255

PATIENT
  Age: 58 Year
  Sex: Female
  Weight: 47.166 kg

DRUGS (4)
  1. MULTIVITAMIN                       /00097801/ [Concomitant]
  2. BORAGE OIL [Concomitant]
  3. OMEGA 3                            /00931501/ [Concomitant]
  4. ENBREL [Suspect]
     Indication: PRODUCT USED FOR UNKNOWN INDICATION
     Dosage: 50 MG, QWK

REACTIONS (1)
  - CONTUSION [None]
